FAERS Safety Report 9176656 (Version 1)
Quarter: 2013Q1

REPORT INFORMATION
  Report Type: Spontaneous
  Country: GB (occurrence: None)
  Receive Date: 20130319
  Receipt Date: 20130319
  Transmission Date: 20140127
  Serious: Yes (Other)
  Sender: FDA-Public Use
  Company Number: 1631072

PATIENT
  Sex: Male

DRUGS (5)
  1. OXALIPLATIN [Suspect]
     Indication: PRODUCT USED FOR UNKNOWN INDICATION
     Dosage: DOSAGE FORM: UNSPECIFIED, UNKNOWN
  2. DARUNAVIR [Suspect]
     Indication: HIV INFECTION
     Route: 048
  3. BEVACIZUMAB [Suspect]
     Indication: PRODUCT USED FOR UNKNOWN INDICATION
     Dosage: DOSAGE FORM: UNSPECIFIED (UNKNOWN)?
  4. (EMTRICITABINE) [Concomitant]
  5. (RALTEGRAVIR) [Concomitant]

REACTIONS (3)
  - Gastrointestinal carcinoma [None]
  - Drug interaction [None]
  - Condition aggravated [None]
